FAERS Safety Report 16037059 (Version 1)
Quarter: 2019Q1

REPORT INFORMATION
  Report Type: Spontaneous
  Country: FR (occurrence: FR)
  Receive Date: 20190305
  Receipt Date: 20190305
  Transmission Date: 20190418
  Serious: Yes (Other)
  Sender: FDA-Public Use
  Company Number: FR-PFIZER INC-2014151024

PATIENT
  Age: 20 Year
  Sex: Female

DRUGS (6)
  1. PARACETAMOL [Suspect]
     Active Substance: ACETAMINOPHEN
     Dosage: 1 G, 3X/DAY
     Route: 042
     Dates: start: 20140510, end: 20140515
  2. OFLOCET [Suspect]
     Active Substance: OFLOXACIN
     Dosage: 200 MG, 2X/DAY
     Route: 042
     Dates: start: 20140510, end: 20140513
  3. PROFENID [Suspect]
     Active Substance: KETOPROFEN
     Dosage: 100 MG, SINGLE
     Route: 042
     Dates: start: 20140510, end: 20140510
  4. AUGMENTIN [Suspect]
     Active Substance: AMOXICILLIN\CLAVULANATE POTASSIUM
     Dosage: 1 G, 3X/DAY
     Route: 042
     Dates: start: 20140510, end: 20140513
  5. METRONIDAZOLE. [Suspect]
     Active Substance: METRONIDAZOLE
     Dosage: 500 MG, 3X/DAY
     Route: 042
     Dates: start: 20140510, end: 20140515
  6. FRAGMINE [Suspect]
     Active Substance: DALTEPARIN SODIUM
     Dosage: 5000 IU, DAILY
     Route: 058
     Dates: start: 20140511

REACTIONS (1)
  - Cholestasis [Not Recovered/Not Resolved]

NARRATIVE: CASE EVENT DATE: 20140512
